FAERS Safety Report 8246401-5 (Version None)
Quarter: 2012Q1

REPORT INFORMATION
  Report Type: 
  Country: None (occurrence: None)
  Receive Date: 20120330
  Receipt Date: 20120309
  Transmission Date: 20120608
  Serious: Yes (Hospitalization, Other)
  Sender: FDA-Public Use
  Company Number: US-JNJFOC-20120302461

PATIENT
  Sex: Male
  Weight: 79.18 kg

DRUGS (4)
  1. COBICISTAT [Suspect]
     Indication: HIV INFECTION
     Route: 048
     Dates: start: 20120131, end: 20120214
  2. DARUNAVIR HYDRATE [Suspect]
     Indication: HIV INFECTION
     Route: 048
     Dates: start: 20120131, end: 20120214
  3. EMTRICITABINE AND TENOFOVIR DISOPROXIL FUMARATE [Suspect]
     Indication: HIV INFECTION
     Route: 048
     Dates: start: 20120131, end: 20120214
  4. SYNTHROID [Concomitant]
     Route: 065
     Dates: start: 20120110

REACTIONS (1)
  - THROMBOCYTOPENIA [None]
